FAERS Safety Report 13831899 (Version 1)
Quarter: 2017Q3

REPORT INFORMATION
  Report Type: Spontaneous
  Country: US (occurrence: US)
  Receive Date: 20170803
  Receipt Date: 20170803
  Transmission Date: 20171127
  Serious: No
  Sender: FDA-Public Use
  Company Number: US-ROCHE-681997

PATIENT
  Age: 88 Year
  Sex: Female

DRUGS (3)
  1. XALATAN [Concomitant]
     Active Substance: LATANOPROST
     Route: 065
  2. BETAGAN [Concomitant]
     Active Substance: LEVOBUNOLOL HYDROCHLORIDE
     Route: 065
  3. BONIVA [Suspect]
     Active Substance: IBANDRONATE SODIUM
     Indication: OSTEOPOROSIS
     Route: 048

REACTIONS (2)
  - Diarrhoea [Not Recovered/Not Resolved]
  - Nausea [Not Recovered/Not Resolved]

NARRATIVE: CASE EVENT DATE: 20100126
